FAERS Safety Report 21758354 (Version 1)
Quarter: 2022Q4

REPORT INFORMATION
  Report Type: Spontaneous
  Country: CA (occurrence: CA)
  Receive Date: 20221221
  Receipt Date: 20221221
  Transmission Date: 20230112
  Serious: Yes (Other)
  Sender: FDA-Public Use
  Company Number: CA-CELLTRION INC.-2022CA021476

PATIENT
  Age: 26 Year
  Sex: Male

DRUGS (2)
  1. INFLECTRA [Suspect]
     Active Substance: INFLIXIMAB-DYYB
     Indication: Colitis ulcerative
     Dosage: UNK (PATIENT WAS ON INFLECTRA IN 2018 )
     Route: 042
     Dates: start: 2018
  2. INFLECTRA [Suspect]
     Active Substance: INFLIXIMAB-DYYB
     Dosage: 1 DF,  DOSAGE INFO: REDACTED
     Route: 042

REACTIONS (2)
  - Renal impairment [Unknown]
  - Renal disorder [Unknown]
